FAERS Safety Report 4685608-0 (Version None)
Quarter: 2005Q2

REPORT INFORMATION
  Report Type: 
  Country: None (occurrence: None)
  Receive Date: 20050608
  Receipt Date: 20050520
  Transmission Date: 20051028
  Serious: Yes (Other)
  Sender: FDA-Public Use
  Company Number: L05-BRA-01814-02

PATIENT
  Sex: Male

DRUGS (2)
  1. INDOMETHACIN [Suspect]
     Indication: BARTTER'S SYNDROME
  2. POTASSIUM CHLORIDE [Suspect]
     Indication: BARTTER'S SYNDROME

REACTIONS (4)
  - DRUG INTOLERANCE [None]
  - GASTRO-INTESTINAL FISTULA [None]
  - HYPOTENSION [None]
  - PEPTIC ULCER PERFORATION [None]
